FAERS Safety Report 5464296-X (Version None)
Quarter: 2007Q3

REPORT INFORMATION
  Report Type: 
  Country: None (occurrence: None)
  Receive Date: 20070921
  Receipt Date: 20070914
  Transmission Date: 20080115
  Serious: Yes (Other)
  Sender: FDA-Public Use
  Company Number: B0487263A

PATIENT
  Sex: Female

DRUGS (2)
  1. REQUIP [Suspect]
     Indication: PARKINSON'S DISEASE
     Route: 048
  2. PERGOLIDE MESYLATE [Concomitant]

REACTIONS (3)
  - DRUG ADMINISTRATION ERROR [None]
  - MUSCULOSKELETAL CHEST PAIN [None]
  - PARKINSON'S DISEASE [None]
